FAERS Safety Report 11392712 (Version 1)
Quarter: 2015Q3

REPORT INFORMATION
  Report Type: Spontaneous
  Country: FR (occurrence: FR)
  Receive Date: 20150818
  Receipt Date: 20150818
  Transmission Date: 20151125
  Serious: Yes (Other)
  Sender: FDA-Public Use
  Company Number: FR-LPDUSPRD-20140471

PATIENT
  Age: 33 Year
  Sex: Female

DRUGS (3)
  1. FERINJECT [Suspect]
     Active Substance: FERRIC CARBOXYMALTOSE
     Route: 041
     Dates: start: 20140117
  2. METHOTREXATE/METHOTREXATE SODIUM [Concomitant]
     Active Substance: METHOTREXATE\METHOTREXATE SODIUM
     Route: 065
  3. ANTI VITAMIN K [Concomitant]
     Route: 065

REACTIONS (3)
  - Rash erythematous [Recovered/Resolved with Sequelae]
  - Hyperhidrosis [Recovered/Resolved with Sequelae]
  - Chest discomfort [Recovered/Resolved with Sequelae]

NARRATIVE: CASE EVENT DATE: 20140117
